FAERS Safety Report 4633670-3 (Version None)
Quarter: 2005Q2

REPORT INFORMATION
  Report Type: 
  Country: None (occurrence: None)
  Receive Date: 20050325
  Receipt Date: 20041213
  Transmission Date: 20051028
  Serious: No
  Sender: FDA-Public Use
  Company Number: USA041286046

PATIENT
  Age: 89 Year
  Sex: Female

DRUGS (6)
  1. FORTEO [Suspect]
     Indication: OSTEOPOROSIS
     Dates: start: 20041126, end: 20041129
  2. CARDIZEM [Concomitant]
  3. PLAVIX [Concomitant]
  4. AMIODARONE HCL [Concomitant]
  5. THYROID TAB [Concomitant]
  6. OCUVITE [Concomitant]

REACTIONS (5)
  - FATIGUE [None]
  - FEELING ABNORMAL [None]
  - HEADACHE [None]
  - HYPERSOMNIA [None]
  - TREMOR [None]
